FAERS Safety Report 5152904-2 (Version None)
Quarter: 2006Q4

REPORT INFORMATION
  Report Type: 
  Country: None (occurrence: None)
  Receive Date: 20061113
  Receipt Date: 20061113
  Transmission Date: 20070319
  Serious: No
  Sender: FDA-Public Use
  Company Number: None

PATIENT
  Age: 34 Year
  Sex: Female
  Weight: 55.3388 kg

DRUGS (1)
  1. NECON [Suspect]
     Indication: CONTRACEPTION
     Dosage: 1 PO QD
     Route: 048

REACTIONS (2)
  - DYSMENORRHOEA [None]
  - NAUSEA [None]
